FAERS Safety Report 6504047-0 (Version None)
Quarter: 2009Q4

REPORT INFORMATION
  Report Type: 
  Country: None (occurrence: None)
  Receive Date: 20091217
  Receipt Date: 20090522
  Transmission Date: 20100525
  Serious: Yes (Hospitalization)
  Sender: FDA-Public Use
  Company Number: JP-PFIZER INC-2009203545

PATIENT
  Age: 52 Year
  Sex: Female
  Weight: 60 kg

DRUGS (21)
  1. SUNITINIB MALATE [Suspect]
     Indication: COLORECTAL CANCER
     Dosage: 37.5 MG, 1X/DAY
     Route: 048
     Dates: start: 20080722, end: 20090421
  2. IRINOTECAN HCL [Suspect]
     Indication: COLORECTAL CANCER
     Dosage: 173 MG, EVERY 2 WEEKS
     Route: 042
     Dates: start: 20080722, end: 20090408
  3. *FOLINIC ACID [Suspect]
     Indication: COLORECTAL CANCER
     Dosage: 192 MG, EVERY 2 WEEKS
     Route: 042
     Dates: start: 20080722, end: 20090408
  4. *FLUOROURACIL [Suspect]
     Indication: COLORECTAL CANCER
     Dosage: 385 MG, EVERY 2 WEEKS
     Route: 040
     Dates: start: 20080722, end: 20090408
  5. *FLUOROURACIL [Suspect]
     Dosage: 2310 MG, EVERY 2 WEEKS
     Route: 041
     Dates: start: 20080722, end: 20090410
  6. GRANISETRON HYDROCHLORIDE [Concomitant]
     Dosage: UNK
     Route: 042
     Dates: start: 20090408, end: 20090408
  7. DEXAMETHASONE SODIUM PHOSPHATE [Concomitant]
     Dosage: UNK
     Route: 042
     Dates: start: 20090408, end: 20090408
  8. METHYLPREDNISOLONE [Concomitant]
     Dosage: UNK
     Route: 048
     Dates: start: 20090409, end: 20090410
  9. METOCLOPRAMIDE [Concomitant]
     Dosage: UNK
     Route: 048
     Dates: start: 20090409, end: 20090412
  10. RAMOSETRON HYDROCHLORIDE [Concomitant]
     Dosage: UNK
     Route: 048
     Dates: start: 20090409, end: 20090410
  11. RABEPRAZOLE SODIUM [Concomitant]
     Dosage: UNK
     Route: 048
     Dates: start: 20080826
  12. SENNOSIDE A+B [Concomitant]
     Dosage: UNK
     Route: 048
     Dates: start: 20080909
  13. SODIUM GUALENATE [Concomitant]
     Dosage: UNK
     Route: 049
     Dates: start: 20080729
  14. ALUMINIUM SILICATE [Concomitant]
     Dosage: UNK
     Route: 048
     Dates: start: 20080821
  15. FUROSEMIDE [Concomitant]
     Dosage: UNK
     Route: 048
     Dates: start: 20081121
  16. SODIUM PICOSULFATE [Concomitant]
     Dosage: UNK
     Route: 048
     Dates: start: 20081217
  17. TRIAMCINOLONE ACETONIDE [Concomitant]
     Dosage: UNK
     Route: 062
     Dates: start: 20080812
  18. MAGNESIUM OXIDE [Concomitant]
     Dosage: UNK
     Route: 048
     Dates: start: 20081021
  19. LIDOCAINE [Concomitant]
     Dosage: UNK
     Route: 062
     Dates: start: 20090108
  20. GENTAMICIN SULFATE [Concomitant]
     Dosage: UNK
     Route: 062
     Dates: start: 20090205
  21. HEPARINOID [Concomitant]
     Dosage: UNK
     Route: 062
     Dates: start: 20090225

REACTIONS (1)
  - PNEUMATOSIS INTESTINALIS [None]
